FAERS Safety Report 9457328 (Version 4)
Quarter: 2013Q4

REPORT INFORMATION
  Report Type: Spontaneous
  Country: FR (occurrence: None)
  Receive Date: 20130812
  Receipt Date: 20131015
  Transmission Date: 20140711
  Serious: Yes (Life-Threatening, Hospitalization)
  Sender: FDA-Public Use
  Company Number: 2013CP000099

PATIENT
  Age: 74 Year
  Sex: Male

DRUGS (17)
  1. PERFALGAN [Suspect]
     Indication: PRODUCT USED FOR UNKNOWN INDICATION
     Route: 042
     Dates: start: 20130524
  2. BACTRIM [Suspect]
     Indication: ANTIBIOTIC PROPHYLAXIS
     Dosage: 1 TABLET
     Route: 048
     Dates: start: 20130426, end: 20130610
  3. VALACYCLOVIR [Suspect]
     Indication: ANTIBIOTIC PROPHYLAXIS
     Dates: start: 20130426
  4. CALCIUM FOLINATE (CALCIUM FOLINATE) [Suspect]
     Indication: PRODUCT USED FOR UNKNOWN INDICATION
     Dosage: 1 TABLET
     Route: 048
     Dates: start: 20130426, end: 20130621
  5. RITUXIMAB (RITUXIMAB) [Suspect]
     Indication: CHRONIC LYMPHOCYTIC LEUKAEMIA
     Dosage: CYCLICAL
     Dates: start: 20130425, end: 20130524
  6. CYCLOPHOSPHAMIDE (CYCLOPHOSPHAMIDE) [Suspect]
     Indication: CHRONIC LYMPHOCYTIC LEUKAEMIA
     Route: 048
     Dates: start: 20130425, end: 20130526
  7. FLUDARABINE (FLUDARABINE) [Suspect]
     Indication: CHRONIC LYMPHOCYTIC LEUKAEMIA
     Route: 048
     Dates: start: 20130524, end: 20130526
  8. ZYLORIC [Suspect]
     Indication: PRODUCT USED FOR UNKNOWN INDICATION
     Route: 048
     Dates: start: 20130426, end: 20130524
  9. POLARAMINE (DEXCHLORPHENIRAMINE MALEATE) [Suspect]
     Indication: PRODUCT USED FOR UNKNOWN INDICATION
     Route: 042
     Dates: start: 20130425, end: 20130524
  10. METHYLPREDNISOLONE [Suspect]
     Indication: PRODUCT USED FOR UNKNOWN INDICATION
     Dates: start: 20130524
  11. SILODOSIN [Concomitant]
  12. ZANIDIP [Concomitant]
  13. KARDEGIC [Concomitant]
  14. CRESTOR [Concomitant]
  15. DUOTRAV [Concomitant]
  16. TRISOPT [Concomitant]
  17. G-CSF [Suspect]
     Indication: PRODUCT USED FOR UNKNOWN INDICATION
     Dates: start: 201305, end: 201306

REACTIONS (1)
  - Drug reaction with eosinophilia and systemic symptoms [None]
